FAERS Safety Report 23611625 (Version 1)
Quarter: 2024Q1

REPORT INFORMATION
  Report Type: Spontaneous
  Country: US (occurrence: US)
  Receive Date: 20240308
  Receipt Date: 20240308
  Transmission Date: 20240409
  Serious: Yes (Hospitalization, Other)
  Sender: FDA-Public Use
  Company Number: US-PFIZER INC-2020247153

PATIENT
  Age: 73 Year
  Sex: Female
  Weight: 81.65 kg

DRUGS (7)
  1. IBRANCE [Suspect]
     Active Substance: PALBOCICLIB
     Indication: Breast cancer metastatic
     Dosage: 100 MG, CYCLIC [100MG ONE TABLET DAILY BY MOUTH FOR 3 WEEK AND THEN OFF FOR ONE WEEK]
     Route: 048
     Dates: start: 20171205
  2. IBRANCE [Suspect]
     Active Substance: PALBOCICLIB
     Dosage: 1 PO (PER ORAL)  DAILY FOR 21 DAYS ON 7 DAYS OFF
     Route: 048
     Dates: start: 20210511
  3. IBRANCE [Suspect]
     Active Substance: PALBOCICLIB
     Dosage: 75 MG, CYCLIC
     Dates: start: 20210629
  4. IBRANCE [Suspect]
     Active Substance: PALBOCICLIB
     Dosage: 75 MG, CYCLIC
     Dates: start: 20240206
  5. XANAX [Concomitant]
     Active Substance: ALPRAZOLAM
  6. ZITHROMAX [Concomitant]
     Active Substance: AZITHROMYCIN DIHYDRATE
  7. FASLODEX [Concomitant]
     Active Substance: FULVESTRANT
     Dosage: UNK
     Dates: start: 201705

REACTIONS (8)
  - Anaemia [Unknown]
  - Gastrointestinal haemorrhage [Unknown]
  - Nausea [Recovering/Resolving]
  - Vomiting [Recovering/Resolving]
  - Leukopenia [Unknown]
  - Back pain [Unknown]
  - Oral pain [Recovering/Resolving]
  - Pollakiuria [Not Recovered/Not Resolved]

NARRATIVE: CASE EVENT DATE: 20231201
